FAERS Safety Report 7773694-0 (Version None)
Quarter: 2011Q3

REPORT INFORMATION
  Report Type: 
  Country: None (occurrence: None)
  Receive Date: 20110920
  Receipt Date: 20110907
  Transmission Date: 20111222
  Serious: Yes (Other)
  Sender: FDA-Public Use
  Company Number: TPA2011A05627

PATIENT
  Age: 69 Year
  Sex: Male

DRUGS (1)
  1. ACTOS [Suspect]
     Dates: start: 20060101, end: 20110509

REACTIONS (1)
  - BLADDER TRANSITIONAL CELL CARCINOMA [None]
